FAERS Safety Report 8621431-X (Version None)
Quarter: 2012Q3

REPORT INFORMATION
  Report Type: 
  Country: None (occurrence: None)
  Receive Date: 20120824
  Receipt Date: 20120816
  Transmission Date: 20120928
  Serious: Yes (Other)
  Sender: FDA-Public Use
  Company Number: JP-B.I. PHARMACEUTICALS,INC./RIDGEFIELD-2012-BP-19643NB

PATIENT
  Sex: Male
  Weight: 64.6 kg

DRUGS (1)
  1. TELMISARTAN/AMLODIPINE [Suspect]
     Indication: HYPERTENSION
     Dosage: TELMISARTAN 40MG/AMLODIPINE 5MG
     Route: 048
     Dates: start: 20110601, end: 20110930

REACTIONS (2)
  - DYSLIPIDAEMIA [None]
  - HYPERTENSION [None]
